FAERS Safety Report 20365365 (Version 1)
Quarter: 2022Q1

REPORT INFORMATION
  Report Type: Spontaneous
  Country: FR (occurrence: FR)
  Receive Date: 20220122
  Receipt Date: 20220122
  Transmission Date: 20220423
  Serious: Yes (Hospitalization)
  Sender: FDA-Public Use
  Company Number: None

PATIENT
  Age: 58 Year
  Sex: Female
  Weight: 135 kg

DRUGS (2)
  1. LEVOFLOXACIN [Suspect]
     Active Substance: LEVOFLOXACIN
     Indication: Osteitis
     Dosage: 2 DOSAGE FORMS DAILY; 500MG, 2/DAY,
     Route: 048
     Dates: start: 20210913, end: 20210929
  2. RIFAMPIN [Suspect]
     Active Substance: RIFAMPIN
     Indication: Osteitis
     Dosage: 2 DOSAGE FORMS DAILY; 600MG, 2/DAY,
     Route: 048
     Dates: start: 20210913, end: 20210929

REACTIONS (2)
  - Multiple organ dysfunction syndrome [Recovered/Resolved]
  - Purpura [Recovered/Resolved]

NARRATIVE: CASE EVENT DATE: 20210921
